FAERS Safety Report 7335693-2 (Version None)
Quarter: 2011Q1

REPORT INFORMATION
  Report Type: 
  Country: None (occurrence: None)
  Receive Date: 20110307
  Receipt Date: 20110228
  Transmission Date: 20110831
  Serious: Yes (Other)
  Sender: FDA-Public Use
  Company Number: A0915870A

PATIENT
  Age: 37 Year
  Sex: Female

DRUGS (2)
  1. FLUTICASONE PROPIONATE [Suspect]
     Dosage: 1SPR PER DAY
     Route: 045
     Dates: end: 20090101
  2. SINUS MEDICATION [Concomitant]

REACTIONS (1)
  - SKIN ATROPHY [None]
